FAERS Safety Report 6393752-5 (Version None)
Quarter: 2009Q4

REPORT INFORMATION
  Report Type: 
  Country: None (occurrence: None)
  Receive Date: 20091008
  Receipt Date: 20090930
  Transmission Date: 20100525
  Serious: Yes (Hospitalization)
  Sender: FDA-Public Use
  Company Number: IT-ABBOTT-09P-083-0600108-00

PATIENT
  Sex: Male

DRUGS (1)
  1. VECLAM [Suspect]
     Indication: ARTHROPOD STING
     Dosage: 2 UNITS
     Route: 048
     Dates: start: 20090930, end: 20090930

REACTIONS (1)
  - LIP OEDEMA [None]
